FAERS Safety Report 14720770 (Version 1)
Quarter: 2018Q1

REPORT INFORMATION
  Report Type: Spontaneous
  Country: US (occurrence: US)
  Receive Date: 20180330
  Receipt Date: 20180330
  Transmission Date: 20180509
  Serious: No
  Sender: FDA-Public Use
  Company Number: None

PATIENT
  Age: 63 Year
  Sex: Female

DRUGS (1)
  1. IBRANCE [Suspect]
     Active Substance: PALBOCICLIB
     Indication: NEOPLASM MALIGNANT
     Dosage: DAILY FOR 21DAYS ON 7 DAYS OFF                                        ?
     Route: 048
     Dates: start: 20180109, end: 20180329

REACTIONS (2)
  - Dyspnoea [None]
  - Adverse drug reaction [None]

NARRATIVE: CASE EVENT DATE: 20180306
